FAERS Safety Report 7966304-0 (Version None)
Quarter: 2011Q4

REPORT INFORMATION
  Report Type: 
  Country: None (occurrence: None)
  Receive Date: 20111208
  Receipt Date: 20111207
  Transmission Date: 20120403
  Serious: Yes (Other)
  Sender: FDA-Public Use
  Company Number: FR-AMGEN-FRASP2011065048

PATIENT
  Age: 69 Year
  Sex: Female

DRUGS (1)
  1. NPLATE [Suspect]
     Indication: IDIOPATHIC THROMBOCYTOPENIC PURPURA
     Dosage: UNK
     Dates: start: 20110101, end: 20110101

REACTIONS (4)
  - PLATELET COUNT DECREASED [None]
  - PLATELET COUNT ABNORMAL [None]
  - DRUG INEFFECTIVE [None]
  - MYELOFIBROSIS [None]
